FAERS Safety Report 18476157 (Version 1)
Quarter: 2020Q4

REPORT INFORMATION
  Report Type: Spontaneous
  Country: US (occurrence: US)
  Receive Date: 20201106
  Receipt Date: 20201106
  Transmission Date: 20210114
  Serious: No
  Sender: FDA-Public Use
  Company Number: US-EPIC PHARMA LLC-2019EPC00332

PATIENT
  Sex: Female

DRUGS (1)
  1. OXYCODONE HYDROCHLORIDE. [Suspect]
     Active Substance: OXYCODONE HYDROCHLORIDE
     Dosage: UNK
     Dates: start: 2014

REACTIONS (3)
  - Unevaluable event [Unknown]
  - Drug ineffective [Recovered/Resolved]
  - Product measured potency issue [Recovered/Resolved]

NARRATIVE: CASE EVENT DATE: 2014
